FAERS Safety Report 6869174-7 (Version None)
Quarter: 2010Q3

REPORT INFORMATION
  Report Type: 
  Country: None (occurrence: None)
  Receive Date: 20100722
  Receipt Date: 20080708
  Transmission Date: 20110219
  Serious: No
  Sender: FDA-Public Use
  Company Number: US-PFIZER INC-2008057339

PATIENT
  Sex: Male
  Weight: 92.99 kg

DRUGS (7)
  1. CHANTIX [Suspect]
     Indication: SMOKING CESSATION THERAPY
     Route: 048
     Dates: start: 20080605, end: 20080629
  2. LIPITOR [Concomitant]
  3. NIFEDIPINE [Concomitant]
  4. BENAZEPRIL HYDROCHLORIDE [Concomitant]
  5. VITAMIN E [Concomitant]
  6. LYSINE [Concomitant]
  7. ACETYLSALICYLIC ACID [Concomitant]

REACTIONS (1)
  - IRRITABILITY [None]
